FAERS Safety Report 12342465 (Version 1)
Quarter: 2016Q2

REPORT INFORMATION
  Report Type: Spontaneous
  Country: US (occurrence: US)
  Receive Date: 20160506
  Receipt Date: 20160506
  Transmission Date: 20160815
  Serious: Yes (Other)
  Sender: FDA-Public Use
  Company Number: US-SA-2016SA088918

PATIENT
  Age: 50 Year
  Sex: Female

DRUGS (1)
  1. AUBAGIO [Suspect]
     Active Substance: TERIFLUNOMIDE
     Indication: MULTIPLE SCLEROSIS
     Route: 048
     Dates: start: 201604

REACTIONS (9)
  - Laceration [Unknown]
  - Skin abrasion [Unknown]
  - Condition aggravated [Unknown]
  - Loss of consciousness [Unknown]
  - Oral candidiasis [Unknown]
  - Flushing [Unknown]
  - Fall [Unknown]
  - Contusion [Unknown]
  - Headache [Unknown]
